FAERS Safety Report 7789049-9 (Version None)
Quarter: 2011Q3

REPORT INFORMATION
  Report Type: 
  Country: None (occurrence: None)
  Receive Date: 20110930
  Receipt Date: 20110923
  Transmission Date: 20111222
  Serious: Yes (Hospitalization, Disabling, Other)
  Sender: FDA-Public Use
  Company Number: JP-ALEXION PHARMACEUTICALS INC.-A201100462

PATIENT
  Age: 51 Year
  Sex: Female

DRUGS (5)
  1. SOLIRIS [Suspect]
     Dosage: 900 MG, Q2W
     Dates: start: 20100827, end: 20110426
  2. SOLIRIS [Suspect]
     Indication: PAROXYSMAL NOCTURNAL HAEMOGLOBINURIA
     Dosage: UNK
     Route: 042
     Dates: start: 20100601
  3. NEUPOGEN [Concomitant]
     Indication: BONE MARROW FAILURE
  4. RED BLOOD CELLS, CONCENTRATED [Concomitant]
     Indication: BONE MARROW FAILURE
     Dosage: 8 UNITS
     Dates: start: 20100101
  5. PREDNISOLONE [Concomitant]
     Indication: PAROXYSMAL NOCTURNAL HAEMOGLOBINURIA
     Dosage: 10 MG, QD
     Dates: end: 20101014

REACTIONS (10)
  - THROMBOSIS [None]
  - MUSCULOSKELETAL PAIN [None]
  - TRANSAMINASES INCREASED [None]
  - MUSCULOSKELETAL STIFFNESS [None]
  - OEDEMA PERIPHERAL [None]
  - CYTOMEGALOVIRUS TEST POSITIVE [None]
  - BONE MARROW FAILURE [None]
  - CONDITION AGGRAVATED [None]
  - BLOOD LACTATE DEHYDROGENASE INCREASED [None]
  - MYALGIA [None]
